FAERS Safety Report 8340957-X (Version None)
Quarter: 2012Q2

REPORT INFORMATION
  Report Type: 
  Country: None (occurrence: None)
  Receive Date: 20120507
  Receipt Date: 20120501
  Transmission Date: 20120825
  Serious: No
  Sender: FDA-Public Use
  Company Number: US-B.I. PHARMACEUTICALS,INC./RIDGEFIELD-2012-BP-09906BP

PATIENT
  Sex: Female

DRUGS (4)
  1. MICARDIS HCT [Suspect]
     Indication: HYPERTENSION
     Route: 048
     Dates: start: 20120101
  2. LEVOTHYROXINE SODIUM [Concomitant]
     Indication: HYPERTHYROIDISM
  3. XANAX [Concomitant]
  4. ALBUTEROL [Concomitant]
     Indication: ASTHMA

REACTIONS (6)
  - RENAL DISORDER [None]
  - CYSTITIS [None]
  - DYSURIA [None]
  - BACK PAIN [None]
  - SKIN DISORDER [None]
  - PRURITUS [None]
